FAERS Safety Report 17363234 (Version 3)
Quarter: 2020Q2

REPORT INFORMATION
  Report Type: Report from Study
  Country: US (occurrence: US)
  Receive Date: 20200203
  Receipt Date: 20200513
  Transmission Date: 20200713
  Serious: Yes (Hospitalization)
  Sender: FDA-Public Use
  Company Number: US-ACTELION-A-NJ2017-154234

PATIENT
  Age: 84 Year
  Sex: Female
  Weight: 68.03 kg

DRUGS (4)
  1. ADEMPAS [Suspect]
     Active Substance: RIOCIGUAT
     Indication: PRODUCT USED FOR UNKNOWN INDICATION
     Route: 048
  2. NIFEDIPINE. [Concomitant]
     Active Substance: NIFEDIPINE
  3. TRACLEER [Suspect]
     Active Substance: BOSENTAN
     Indication: PULMONARY ARTERIAL HYPERTENSION
     Dosage: 125 MG, BID
     Route: 048
  4. TYVASO [Concomitant]
     Active Substance: TREPROSTINIL

REACTIONS (12)
  - Oxygen saturation decreased [Recovering/Resolving]
  - Urinary tract infection [Unknown]
  - Swelling [Unknown]
  - Dyspnoea exertional [Unknown]
  - Unevaluable event [Unknown]
  - Heart rate irregular [Unknown]
  - Joint swelling [Unknown]
  - Heart rate increased [Unknown]
  - Mobility decreased [Unknown]
  - Drug hypersensitivity [Unknown]
  - Peripheral swelling [Unknown]
  - Cystitis [Unknown]

NARRATIVE: CASE EVENT DATE: 20170802
